FAERS Safety Report 10757935 (Version 1)
Quarter: 2015Q1

REPORT INFORMATION
  Report Type: Spontaneous
  Country: US (occurrence: None)
  Receive Date: 20150202
  Receipt Date: 20150202
  Transmission Date: 20150721
  Serious: No
  Sender: FDA-Public Use
  Company Number: None

PATIENT
  Age: 71 Year
  Sex: Female
  Weight: 176 kg

DRUGS (9)
  1. PREMARIN [Concomitant]
     Active Substance: ESTROGENS, CONJUGATED
  2. HYDROCHLOROTHIAZIDE. [Concomitant]
     Active Substance: HYDROCHLOROTHIAZIDE
  3. ASPIRIN. [Concomitant]
     Active Substance: ASPIRIN
  4. SYNTHROID [Concomitant]
     Active Substance: LEVOTHYROXINE SODIUM
  5. 1-A-DAY VITAMIN [Concomitant]
  6. VITAMINS D3 [Concomitant]
  7. STOOL SOFTENER WITH LAXATIVE [Concomitant]
     Active Substance: DOCUSATE SODIUM\SENNOSIDES A AND B
  8. ZETIA [Suspect]
     Active Substance: EZETIMIBE
     Indication: BLOOD CHOLESTEROL
     Dosage: 10 MG 1 PILL 1 DAILY BY MOUTH
     Route: 048
     Dates: start: 20130518, end: 20131202
  9. PROTOSEC [Concomitant]

REACTIONS (4)
  - Pain in extremity [None]
  - Back pain [None]
  - Musculoskeletal pain [None]
  - Arthralgia [None]

NARRATIVE: CASE EVENT DATE: 2013
